FAERS Safety Report 5802102-1 (Version None)
Quarter: 2008Q3

REPORT INFORMATION
  Report Type: 
  Country: None (occurrence: None)
  Receive Date: 20080707
  Receipt Date: 20080626
  Transmission Date: 20090109
  Serious: Yes (Other)
  Sender: FDA-Public Use
  Company Number: PHHY2008CA07142

PATIENT
  Sex: Male

DRUGS (6)
  1. ZOLEDRONIC ACID [Suspect]
     Indication: OSTEOPOROSIS
     Dosage: 5 MG
     Route: 042
     Dates: start: 20071214
  2. ALDACTONE [Concomitant]
     Dosage: UNK
  3. PROPRANOLOL [Concomitant]
     Dosage: UNK
  4. CALCIUM [Concomitant]
     Dosage: EVERYDAY
  5. VITAMIN D [Concomitant]
  6. DIABETA [Concomitant]
     Dosage: UNK

REACTIONS (3)
  - ASCITES [None]
  - PARACENTESIS [None]
  - WEIGHT INCREASED [None]
